FAERS Safety Report 6897571-2 (Version None)
Quarter: 2010Q3

REPORT INFORMATION
  Report Type: 
  Country: None (occurrence: None)
  Receive Date: 20100802
  Receipt Date: 20070619
  Transmission Date: 20110219
  Serious: No
  Sender: FDA-Public Use
  Company Number: US-PFIZER INC-2007051557

PATIENT
  Sex: Female
  Weight: 90.9 kg

DRUGS (17)
  1. LYRICA [Suspect]
     Indication: NEUROPATHY PERIPHERAL
     Route: 048
     Dates: start: 20070301
  2. INSULIN LENTE [Concomitant]
  3. ACTOS [Concomitant]
  4. FOLIC ACID [Concomitant]
  5. ACETYLSALICYLIC ACID SRT [Concomitant]
  6. SYNTHROID [Concomitant]
  7. PREVACID [Concomitant]
  8. LORTAB [Concomitant]
  9. PRAVACHOL [Concomitant]
  10. RESTORIL [Concomitant]
  11. INDERAL [Concomitant]
  12. ALLOPURINOL [Concomitant]
  13. VITAMINS [Concomitant]
  14. BENTYL [Concomitant]
  15. LUNESTA [Concomitant]
  16. DIPYRIDAMOLE [Concomitant]
  17. CELEXA [Concomitant]

REACTIONS (6)
  - DISCOMFORT [None]
  - FEELING ABNORMAL [None]
  - HEADACHE [None]
  - SOMNOLENCE [None]
  - VISUAL ACUITY REDUCED [None]
  - WHITE BLOOD CELL COUNT DECREASED [None]
